FAERS Safety Report 7319290-0 (Version None)
Quarter: 2011Q1

REPORT INFORMATION
  Report Type: 
  Country: None (occurrence: None)
  Receive Date: 20110228
  Receipt Date: 20100429
  Transmission Date: 20110831
  Serious: No
  Sender: FDA-Public Use
  Company Number: A0839749A

PATIENT
  Age: 36 Year
  Sex: Female
  Weight: 81.8 kg

DRUGS (3)
  1. METHADONE [Concomitant]
  2. OIL OF OLAY [Suspect]
  3. LAMICTAL [Suspect]
     Indication: BIPOLAR DISORDER
     Dosage: 25MG PER DAY
     Route: 048
     Dates: start: 20100101, end: 20100101

REACTIONS (5)
  - DRY SKIN [None]
  - RASH [None]
  - LETHARGY [None]
  - RASH PAPULAR [None]
  - SWELLING FACE [None]
